FAERS Safety Report 9271639 (Version 3)
Quarter: 2013Q4

REPORT INFORMATION
  Report Type: Spontaneous
  Country: CA (occurrence: CA)
  Receive Date: 20130506
  Receipt Date: 20131223
  Transmission Date: 20140711
  Serious: Yes (Hospitalization, Other)
  Sender: FDA-Public Use
  Company Number: CA-PFIZER INC-2013109616

PATIENT
  Age: 77 Year
  Sex: Male
  Weight: 72.56 kg

DRUGS (13)
  1. INLYTA [Suspect]
     Indication: METASTATIC RENAL CELL CARCINOMA
     Dosage: 5 MG, 1X/DAY
     Dates: start: 20130304, end: 20130316
  2. INSULIN [Concomitant]
     Indication: DIABETES MELLITUS
     Dosage: 1000 IU/ML, 1X/DAY
     Dates: start: 1988
  3. METFORMIN [Concomitant]
     Indication: DIABETES MELLITUS
     Dosage: 1 X 500 MG TABLET, 2X/DAY
     Route: 048
     Dates: start: 1988
  4. ASPIRIN [Concomitant]
     Indication: BLOOD DISORDER
     Dosage: 1 X 81 MG TABLET, 1X/DAY
     Dates: start: 2013
  5. SENOKOT [Concomitant]
     Indication: ABNORMAL FAECES
     Dosage: 8.6 MG X2 TABLETS, 1X/DAY AT BEDTIME
     Dates: start: 2013
  6. AVAPRO [Concomitant]
     Indication: BLOOD PRESSURE ABNORMAL
     Dosage: 150 MG, DAILY
  7. MORPHINE [Concomitant]
     Indication: PAIN
     Dosage: 15 MG + 5 MG, 1 TABLET IN AM AND PM AND 1 TABLET BREAK THRU
     Dates: start: 2010
  8. CLONAZEPAM [Concomitant]
     Indication: INSOMNIA
     Dosage: 0.5 MG X2 TABLETS AT BEDTIME, AS NEEDED
     Dates: start: 2012
  9. MS-CONTIN [Concomitant]
     Dosage: 15 MG, 2X/DAY
     Route: 048
  10. TRAZODONE [Concomitant]
     Dosage: 50 MG, AS NEEDED AT BEDTIME
  11. FUROSEMIDE [Concomitant]
     Dosage: 20 MG, EVERY MORNING
     Route: 048
  12. LANTUS [Concomitant]
     Dosage: 22 IU, AT BEDTIME (STAT)
  13. LIPITOR [Concomitant]
     Dosage: 40 MG, DAILY
     Route: 048

REACTIONS (5)
  - Muscular weakness [Recovered/Resolved with Sequelae]
  - Embolic stroke [Recovered/Resolved with Sequelae]
  - Dizziness [Recovered/Resolved with Sequelae]
  - Fall [Recovered/Resolved with Sequelae]
  - Visual impairment [Recovered/Resolved with Sequelae]
